FAERS Safety Report 19709251 (Version 1)
Quarter: 2021Q3

REPORT INFORMATION
  Report Type: Spontaneous
  Country: US (occurrence: US)
  Receive Date: 20210817
  Receipt Date: 20210817
  Transmission Date: 20211014
  Serious: No
  Sender: FDA-Public Use
  Company Number: US-ASTRAZENECA-2021A646987

PATIENT
  Age: 981 Month
  Sex: Female

DRUGS (1)
  1. BUDESONIDE AND FORMOTEROL [Suspect]
     Active Substance: BUDESONIDE\FORMOTEROL
     Indication: CHRONIC OBSTRUCTIVE PULMONARY DISEASE
     Dosage: 80/4.5 120 INHALATIONS
     Route: 055
     Dates: start: 20210629

REACTIONS (6)
  - Pruritus [Unknown]
  - Throat irritation [Not Recovered/Not Resolved]
  - Ocular discomfort [Unknown]
  - Vision blurred [Unknown]
  - Asthma [Unknown]
  - Glaucoma [Unknown]

NARRATIVE: CASE EVENT DATE: 202107
